FAERS Safety Report 22277126 (Version 1)
Quarter: 2023Q2

REPORT INFORMATION
  Report Type: Spontaneous
  Country: CA (occurrence: CA)
  Receive Date: 20230503
  Receipt Date: 20230503
  Transmission Date: 20230721
  Serious: Yes (Other)
  Sender: FDA-Public Use
  Company Number: CA-AUROBINDO-AUR-APL-2023-032943

PATIENT
  Age: 63 Year
  Sex: Male

DRUGS (9)
  1. GANCICLOVIR [Suspect]
     Active Substance: GANCICLOVIR
     Indication: Antiviral prophylaxis
     Dosage: UNK
     Route: 042
  2. VALGANCICLOVIR HYDROCHLORIDE [Suspect]
     Active Substance: VALGANCICLOVIR HYDROCHLORIDE
     Indication: Liver transplant
     Dosage: UNK
     Route: 042
  3. VALGANCICLOVIR HYDROCHLORIDE [Suspect]
     Active Substance: VALGANCICLOVIR HYDROCHLORIDE
     Indication: Antiviral prophylaxis
  4. ATOVAQUONE [Suspect]
     Active Substance: ATOVAQUONE
     Indication: Antiviral prophylaxis
     Dosage: UNK
     Route: 048
  5. CYCLOSPORINE [Suspect]
     Active Substance: CYCLOSPORINE
     Indication: Product used for unknown indication
     Dosage: UNK
     Route: 065
  6. SULFAMETHOXAZOLE\TRIMETHOPRIM [Suspect]
     Active Substance: SULFAMETHOXAZOLE\TRIMETHOPRIM
     Indication: Product used for unknown indication
     Dosage: UNK
     Route: 065
  7. AZATHIOPRINE [Concomitant]
     Active Substance: AZATHIOPRINE
     Indication: Product used for unknown indication
     Dosage: UNK
     Route: 065
  8. SIMULECT [Concomitant]
     Active Substance: BASILIXIMAB
     Indication: Product used for unknown indication
     Dosage: UNK
     Route: 042
  9. TACROLIMUS [Concomitant]
     Active Substance: TACROLIMUS
     Indication: Product used for unknown indication
     Dosage: UNK
     Route: 065

REACTIONS (10)
  - Acute graft versus host disease [Unknown]
  - Anaemia [Unknown]
  - Graft versus host disease in gastrointestinal tract [Unknown]
  - Graft versus host disease in skin [Unknown]
  - Marrow hyperplasia [Unknown]
  - Neutropenia [Unknown]
  - Pancytopenia [Unknown]
  - Sepsis [Unknown]
  - Thrombocytopenia [Unknown]
  - Product use in unapproved indication [Unknown]
